FAERS Safety Report 21780210 (Version 2)
Quarter: 2023Q1

REPORT INFORMATION
  Report Type: Report from Study
  Country: DE (occurrence: None)
  Receive Date: 20221227
  Receipt Date: 20230309
  Transmission Date: 20230418
  Serious: Yes (Hospitalization)
  Sender: FDA-Public Use
  Company Number: DE-ROCHE-3249439

PATIENT
  Age: 57 Year
  Sex: Female
  Weight: 60 kg

DRUGS (26)
  1. ATEZOLIZUMAB [Suspect]
     Active Substance: ATEZOLIZUMAB
     Indication: Triple negative breast cancer
     Dosage: DATE OF LAST DOSE PRIOR TO SAE: 24/NOV/2022
     Route: 041
     Dates: start: 20220823
  2. PACLITAXEL [Suspect]
     Active Substance: PACLITAXEL
     Indication: Triple negative breast cancer
     Dosage: DATE OF LAST DOSE PRIOR TO SAE: 03/NOV/2022
     Route: 042
     Dates: start: 20220823
  3. CARBOPLATIN [Suspect]
     Active Substance: CARBOPLATIN
     Indication: Triple negative breast cancer
     Dosage: DATE OF LAST DOSE PRIOR TO SAE: 03/NOV/2022
     Route: 042
     Dates: start: 20220823
  4. EPIRUBICIN [Suspect]
     Active Substance: EPIRUBICIN
     Indication: Triple negative breast cancer
     Dosage: DATE OF LAST DOSE PRIOR TO SAE: 24/NOV/2022
     Route: 042
     Dates: start: 20221124
  5. CYCLOPHOSPHAMIDE [Suspect]
     Active Substance: CYCLOPHOSPHAMIDE
     Indication: Triple negative breast cancer
     Dosage: DATE OF LAST DOSE PRIOR TO SAE: 24/NOV/2022
     Route: 042
     Dates: start: 20221124
  6. DULOXETINE [Concomitant]
     Active Substance: DULOXETINE
     Dates: start: 202201
  7. DEXAMETHASONE [Concomitant]
     Active Substance: DEXAMETHASONE
     Dates: start: 20220823, end: 20221103
  8. DEXAMETHASONE [Concomitant]
     Active Substance: DEXAMETHASONE
     Dates: start: 20221124, end: 20230202
  9. DEXAMETHASONE [Concomitant]
     Active Substance: DEXAMETHASONE
     Dates: start: 20221124, end: 20230205
  10. CLEMASTINE [Concomitant]
     Active Substance: CLEMASTINE
     Dates: start: 20220823, end: 20221103
  11. GRANISETRON [Concomitant]
     Active Substance: GRANISETRON
     Dates: start: 20220823, end: 20230202
  12. GRANISETRON [Concomitant]
     Active Substance: GRANISETRON
     Dates: start: 20220823
  13. EMEND [Concomitant]
     Active Substance: APREPITANT
     Dosage: 125/80 MG
     Dates: start: 20220906
  14. ARANESP [Concomitant]
     Active Substance: DARBEPOETIN ALFA
     Dates: start: 20221026
  15. TAVOR (LORAZEPAM) [Concomitant]
     Active Substance: LORAZEPAM
     Dates: start: 20221103, end: 20221110
  16. TAVOR (LORAZEPAM) [Concomitant]
     Active Substance: LORAZEPAM
     Dates: start: 20221124
  17. NEUPOGEN [Concomitant]
     Active Substance: FILGRASTIM
     Dosage: 60 MIO I.E OTHER
     Dates: start: 20220928
  18. PANTOPRAZOLE [Concomitant]
     Active Substance: PANTOPRAZOLE
     Dates: start: 20220913
  19. PANTOPRAZOLE [Concomitant]
     Active Substance: PANTOPRAZOLE
     Dates: start: 20221124
  20. ZOPICLONE [Concomitant]
     Active Substance: ZOPICLONE
     Dates: start: 20221111
  21. ENOXAPARIN SODIUM [Concomitant]
     Active Substance: ENOXAPARIN SODIUM
     Dosage: 4.000 I.E
     Dates: start: 20221124
  22. NEULASTA [Concomitant]
     Active Substance: PEGFILGRASTIM
     Dates: start: 20221125
  23. METAMIZOLE [Concomitant]
     Active Substance: METAMIZOLE
     Dosage: 30 DROPS
     Dates: start: 20221124
  24. ZOFRAN [Concomitant]
     Active Substance: ONDANSETRON HYDROCHLORIDE
     Dates: start: 20221004
  25. FOSAPREPITANT [Concomitant]
     Active Substance: FOSAPREPITANT
     Dates: start: 20221124, end: 20230202
  26. MESNA [Concomitant]
     Active Substance: MESNA
     Dates: start: 20221124, end: 20230202

REACTIONS (1)
  - Device related infection [Recovered/Resolved]

NARRATIVE: CASE EVENT DATE: 20221124
